FAERS Safety Report 18683906 (Version 2)
Quarter: 2021Q1

REPORT INFORMATION
  Report Type: Report from Study
  Country: BR (occurrence: BR)
  Receive Date: 20201230
  Receipt Date: 20210211
  Transmission Date: 20210419
  Serious: Yes (Disabling, Other)
  Sender: FDA-Public Use
  Company Number: BR-TAKEDA-BR201912693

PATIENT
  Age: 10 Year
  Sex: Male
  Weight: 35 kg

DRUGS (5)
  1. KEPPRA [Concomitant]
     Active Substance: LEVETIRACETAM
     Indication: SEIZURE
     Dosage: 3 MILLIGRAM, BID
     Route: 065
  2. MELATONIN [Concomitant]
     Active Substance: MELATONIN
     Indication: INSOMNIA
     Dosage: 5 MILLILITER, QD
     Route: 065
  3. IDURSULFASE [Suspect]
     Active Substance: IDURSULFASE
     Dosage: 4 DOSAGE FORM, 1/WEEK
     Route: 042
     Dates: start: 20130101
  4. RISPERIDONE. [Concomitant]
     Active Substance: RISPERIDONE
     Indication: AGITATION
     Dosage: 1 MILLILITER, BID
     Route: 065
     Dates: start: 2013
  5. IDURSULFASE [Suspect]
     Active Substance: IDURSULFASE
     Indication: MUCOPOLYSACCHARIDOSIS II
     Dosage: 4 DOSAGE FORM, 1/WEEK
     Route: 042

REACTIONS (12)
  - Seizure [Recovered/Resolved]
  - Dysarthria [Unknown]
  - Mucopolysaccharidosis II [Unknown]
  - Pyrexia [Unknown]
  - Product availability issue [Unknown]
  - Condition aggravated [Recovering/Resolving]
  - Dysphagia [Unknown]
  - Muscular weakness [Recovering/Resolving]
  - Off label use [Unknown]
  - Inappropriate schedule of product administration [Unknown]
  - Gait inability [Recovering/Resolving]
  - Agitation [Recovered/Resolved]

NARRATIVE: CASE EVENT DATE: 202002
